FAERS Safety Report 9121202 (Version 2)
Quarter: 2013Q3

REPORT INFORMATION
  Report Type: Spontaneous
  Country: US (occurrence: US)
  Receive Date: 20130225
  Receipt Date: 20130709
  Transmission Date: 20140515
  Serious: Yes (Other)
  Sender: FDA-Public Use
  Company Number: US-PFIZER INC-2013063880

PATIENT
  Age: 21 Year
  Sex: Male
  Weight: 70.3 kg

DRUGS (1)
  1. BENEFIX [Suspect]
     Indication: FACTOR IX DEFICIENCY
     Dosage: 75 IU/KG, PER WEEK, 3X/WEEK

REACTIONS (3)
  - Haemorrhage [Unknown]
  - Joint injury [Unknown]
  - Off label use [Unknown]
